FAERS Safety Report 14646913 (Version 1)
Quarter: 2018Q1

REPORT INFORMATION
  Report Type: Spontaneous
  Country: FR (occurrence: FR)
  Receive Date: 20180316
  Receipt Date: 20180316
  Transmission Date: 20180509
  Serious: Yes (Other)
  Sender: FDA-Public Use
  Company Number: FR-MERCK KGAA-2043904

PATIENT
  Sex: Female

DRUGS (1)
  1. NOVOTHYROX [Suspect]
     Active Substance: LEVOTHYROXINE SODIUM
     Indication: PRODUCT USED FOR UNKNOWN INDICATION

REACTIONS (11)
  - Hypokinesia [None]
  - Social avoidant behaviour [None]
  - Tinnitus [None]
  - Depression [None]
  - Drug intolerance [None]
  - Paraesthesia [None]
  - Negative thoughts [None]
  - Fear of disease [None]
  - Depressed mood [None]
  - Amnesia [None]
  - Memory impairment [None]
